FAERS Safety Report 5014475-0 (Version None)
Quarter: 2006Q2

REPORT INFORMATION
  Report Type: 
  Country: None (occurrence: None)
  Receive Date: 20060525
  Receipt Date: 20060515
  Transmission Date: 20061013
  Serious: Yes (Death, Hospitalization)
  Sender: FDA-Public Use
  Company Number: 2005097232

PATIENT
  Age: 58 Year
  Sex: Female

DRUGS (7)
  1. CELEBREX [Suspect]
     Indication: ARTHRALGIA
     Dosage: 200 MG (200 MG, 1 IN 1 D)
     Dates: start: 20000403, end: 20010201
  2. CELEBREX [Suspect]
     Indication: ARTHRITIS
     Dosage: 200 MG (200 MG, 1 IN 1 D)
     Dates: start: 20000403, end: 20010201
  3. CELEBREX [Suspect]
     Indication: BACK PAIN
     Dosage: 200 MG (200 MG, 1 IN 1 D)
     Dates: start: 20000403, end: 20010201
  4. BEXTRA [Suspect]
     Indication: ARTHRALGIA
     Dosage: 20 MG (10 MG, 2 IN 1 D)
     Dates: start: 20030403, end: 20041030
  5. BEXTRA [Suspect]
     Indication: ARTHRITIS
     Dosage: 20 MG (10 MG, 2 IN 1 D)
     Dates: start: 20030403, end: 20041030
  6. BEXTRA [Suspect]
     Indication: BACK PAIN
     Dosage: 20 MG (10 MG, 2 IN 1 D)
     Dates: start: 20030403, end: 20041030
  7. VIOXX [Suspect]
     Indication: ILL-DEFINED DISORDER
     Dates: start: 19991101, end: 20000101

REACTIONS (8)
  - CARDIAC ARREST [None]
  - CEREBROVASCULAR ACCIDENT [None]
  - CORONARY ARTERY DISEASE [None]
  - DIZZINESS [None]
  - HYPERTENSION [None]
  - MYOCARDIAL INFARCTION [None]
  - OEDEMA [None]
  - THROMBOSIS [None]
